FAERS Safety Report 11518469 (Version 7)
Quarter: 2020Q1

REPORT INFORMATION
  Report Type: Spontaneous
  Country: US (occurrence: US)
  Receive Date: 20150917
  Receipt Date: 20200305
  Transmission Date: 20200409
  Serious: Yes (Other)
  Sender: FDA-Public Use
  Company Number: US-PFIZER INC-2015311104

PATIENT
  Age: 54 Year
  Sex: Female
  Weight: 48.27 kg

DRUGS (7)
  1. CHANTIX [Suspect]
     Active Substance: VARENICLINE TARTRATE
     Dosage: 0.5 MG, 2X/DAY(TWICE DAILY X 3DAYS)
  2. CHANTIX [Suspect]
     Active Substance: VARENICLINE TARTRATE
     Dosage: 0.5 MG, DAILY (DAILY X 3 DAYS)
  3. AMBIEN [Concomitant]
     Active Substance: ZOLPIDEM TARTRATE
     Indication: SLEEP DISORDER
     Dosage: UNK
  4. CHANTIX [Suspect]
     Active Substance: VARENICLINE TARTRATE
     Indication: SMOKING CESSATION THERAPY
     Dosage: 0.5 MG, 2X/DAY(HALF A TABLET TWICE A DAY/TOOK ONE HALF A FULL BLUE PILL TWICE A DAY)
     Route: 048
     Dates: start: 2015
  5. ESTRACE [Concomitant]
     Active Substance: ESTRADIOL
     Indication: OSTEOPOROSIS
     Dosage: UNK
  6. CHANTIX [Suspect]
     Active Substance: VARENICLINE TARTRATE
     Dosage: 1 MG, 2X/DAY (FULL BLUE PILL TWICE A DAY)
     Route: 048
     Dates: end: 201603
  7. FOSAMAX [Concomitant]
     Active Substance: ALENDRONATE SODIUM
     Indication: OSTEOPOROSIS
     Dosage: UNK

REACTIONS (9)
  - Eating disorder [Recovered/Resolved]
  - Choking [Recovered/Resolved]
  - Dysphagia [Recovered/Resolved]
  - Incoherent [Unknown]
  - Confusional state [Recovered/Resolved]
  - Fatigue [Recovered/Resolved]
  - Product prescribing error [Unknown]
  - Dysuria [Recovered/Resolved]
  - Asthenia [Recovered/Resolved]
